FAERS Safety Report 16278168 (Version 3)
Quarter: 2024Q3

REPORT INFORMATION
  Report Type: Report from Study
  Country: FR (occurrence: FR)
  Receive Date: 20190506
  Receipt Date: 20240729
  Transmission Date: 20241016
  Serious: Yes (Hospitalization, Other)
  Sender: MYLAN
  Company Number: FR-TAKEDA-2016MPI010461

PATIENT
  Age: 41 Year
  Sex: Male
  Weight: 83 kg

DRUGS (15)
  1. CISPLATIN [Suspect]
     Active Substance: CISPLATIN
     Indication: Lymphoma
     Dosage: UNK
     Route: 065
     Dates: start: 20180629, end: 20181030
  2. DEXAMETHASONE [Suspect]
     Active Substance: DEXAMETHASONE
     Indication: Lymphoma
     Dosage: UNK
     Route: 065
     Dates: start: 20180629, end: 20181030
  3. AZT [Suspect]
     Active Substance: ZIDOVUDINE
     Indication: Lymphoma
     Dosage: 600 MILLIGRAM, QD
     Route: 042
     Dates: start: 20160811
  4. CYCLOPHOSPHAMIDE [Suspect]
     Active Substance: CYCLOPHOSPHAMIDE
     Indication: Lymphoma
     Dosage: UNK
     Route: 042
     Dates: start: 20160811, end: 20181030
  5. BRENTUXIMAB VEDOTIN [Suspect]
     Active Substance: BRENTUXIMAB VEDOTIN
     Indication: Angiocentric lymphoma
     Dosage: 150 MILLIGRAM
     Route: 042
     Dates: start: 20160811, end: 20170207
  6. BRENTUXIMAB VEDOTIN [Suspect]
     Active Substance: BRENTUXIMAB VEDOTIN
     Indication: Lymphoma
     Dosage: 145 MILLIGRAM
     Route: 042
     Dates: start: 20170110
  7. BRENTUXIMAB VEDOTIN [Suspect]
     Active Substance: BRENTUXIMAB VEDOTIN
     Dosage: UNK
     Route: 065
     Dates: start: 20180629, end: 20181030
  8. BRENTUXIMAB VEDOTIN [Suspect]
     Active Substance: BRENTUXIMAB VEDOTIN
     Dosage: 130 MILLIGRAM
     Route: 042
     Dates: start: 20180629, end: 20181030
  9. BRENTUXIMAB VEDOTIN [Suspect]
     Active Substance: BRENTUXIMAB VEDOTIN
     Dosage: 90 MILLIGRAM
     Route: 042
  10. BRENTUXIMAB VEDOTIN [Suspect]
     Active Substance: BRENTUXIMAB VEDOTIN
     Dosage: 94 MILLIGRAM
     Route: 042
  11. DOXORUBICIN HYDROCHLORIDE [Suspect]
     Active Substance: DOXORUBICIN HYDROCHLORIDE
     Indication: Lymphoma
     Dosage: UNK
     Route: 042
     Dates: start: 20160811, end: 20161206
  12. INTERFERON ALFA NOS [Suspect]
     Active Substance: INTERFERON ALFA-2A OR INTERFERON ALFA-2B
     Indication: Product used for unknown indication
     Dosage: 1 DOSAGE FORM, QD (1X/DAY)
     Route: 042
     Dates: start: 20160811
  13. CYTARABINE [Suspect]
     Active Substance: CYTARABINE
     Indication: Lymphoma
     Dosage: UNK
     Route: 065
     Dates: start: 20180629, end: 20181030
  14. REVLIMID [Concomitant]
     Active Substance: LENALIDOMIDE
     Indication: Lymphoma
     Dosage: UNK
     Route: 065
  15. CISPLATIN\CYTARABINE\DEXAMETHASONE [Concomitant]
     Active Substance: CISPLATIN\CYTARABINE\DEXAMETHASONE
     Indication: Lymphoma
     Dosage: UNK
     Route: 065
     Dates: start: 20180629, end: 20181030

REACTIONS (6)
  - Weight decreased [Unknown]
  - Enteritis [Recovered/Resolved]
  - Haematotoxicity [Unknown]
  - Neutropenia [Recovered/Resolved]
  - Anaemia [Recovered/Resolved]
  - Off label use [Unknown]

NARRATIVE: CASE EVENT DATE: 20160811
